FAERS Safety Report 6105311-X (Version None)
Quarter: 2009Q1

REPORT INFORMATION
  Report Type: 
  Country: None (occurrence: None)
  Receive Date: 20090306
  Receipt Date: 20090305
  Transmission Date: 20090719
  Serious: Yes (Death)
  Sender: FDA-Public Use
  Company Number: US-ASTRAZENECA-2009UW05803

PATIENT
  Age: 52 Year
  Sex: Female

DRUGS (3)
  1. SYMBICORT [Suspect]
     Route: 055
  2. NEXIUM [Suspect]
     Route: 048
  3. SEROQUEL XR [Suspect]
     Route: 048

REACTIONS (1)
  - DEATH [None]
